FAERS Safety Report 17890585 (Version 1)
Quarter: 2020Q2

REPORT INFORMATION
  Report Type: Spontaneous
  Country: US (occurrence: US)
  Receive Date: 20200612
  Receipt Date: 20200612
  Transmission Date: 20200714
  Serious: Yes (Other)
  Sender: FDA-Public Use
  Company Number: US-BAYER-2020-104832

PATIENT
  Sex: Male

DRUGS (2)
  1. LOTRIMIN [Suspect]
     Active Substance: CLOTRIMAZOLE
     Dosage: UNK
  2. LOTRIMIN [Suspect]
     Active Substance: CLOTRIMAZOLE
     Route: 061

REACTIONS (3)
  - Gangrene [Unknown]
  - Product use in unapproved indication [Unknown]
  - Drug ineffective [Unknown]
